FAERS Safety Report 15723515 (Version 3)
Quarter: 2019Q1

REPORT INFORMATION
  Report Type: Spontaneous
  Country: TR (occurrence: TR)
  Receive Date: 20181214
  Receipt Date: 20190111
  Transmission Date: 20190417
  Serious: Yes (Life-Threatening, Hospitalization, Other)
  Sender: FDA-Public Use
  Company Number: TR-PFIZER INC-2018510356

PATIENT
  Age: 45 Year
  Sex: Male

DRUGS (2)
  1. SERTRALINE HCL [Suspect]
     Active Substance: SERTRALINE HYDROCHLORIDE
     Indication: OBSESSIVE-COMPULSIVE DISORDER
     Dosage: 150 MG, DAILY (HIGH-DOSE)
  2. SERTRALINE HCL [Suspect]
     Active Substance: SERTRALINE HYDROCHLORIDE
     Dosage: 50 MG, DAILY (REDUCED)

REACTIONS (6)
  - Nasopharyngitis [Unknown]
  - Oropharyngeal pain [Unknown]
  - Drug abuse [Unknown]
  - Fatigue [Unknown]
  - Neutropenia [Recovered/Resolved]
  - Myalgia [Unknown]
